FAERS Safety Report 5410363-6 (Version None)
Quarter: 2007Q3

REPORT INFORMATION
  Report Type: 
  Country: None (occurrence: None)
  Receive Date: 20070808
  Receipt Date: 20070727
  Transmission Date: 20080115
  Serious: Yes (Hospitalization)
  Sender: FDA-Public Use
  Company Number: 028-C5013-07071631

PATIENT
  Age: 47 Year
  Sex: Male
  Weight: 72.8 kg

DRUGS (2)
  1. CC-5013 (LENALIDOMIE) (CAPSULES) [Suspect]
     Indication: MULTIPLE MYELOMA
     Dosage: 25 MG, ORAL
     Route: 048
     Dates: start: 20060613, end: 20070423
  2. DEXAMETHASONE TAB [Suspect]
     Indication: MULTIPLE MYELOMA
     Dosage: 40 MG, DAYS 1-4, 9-12, AND 17-20
     Dates: start: 20060613, end: 20070423

REACTIONS (6)
  - ANAEMIA [None]
  - ATRIAL FIBRILLATION [None]
  - EYE INFECTION INTRAOCULAR [None]
  - FEBRILE NEUTROPENIA [None]
  - RECTAL ABSCESS [None]
  - THROMBOCYTOPENIA [None]
